FAERS Safety Report 5086975-9 (Version None)
Quarter: 2006Q3

REPORT INFORMATION
  Report Type: 
  Country: None (occurrence: None)
  Receive Date: 20060821
  Receipt Date: 20060804
  Transmission Date: 20061208
  Serious: Yes (Hospitalization, Other)
  Sender: FDA-Public Use
  Company Number: 2006AL002186

PATIENT
  Age: 76 Year
  Sex: Female

DRUGS (8)
  1. DICLOFENAC SODIUM EXTENDED-RELEASE TABLET, 100 MG (PUREPAC) (DICLOFENA [Suspect]
  2. METFORMIN HCL [Suspect]
     Indication: DIABETES MELLITUS NON-INSULIN-DEPENDENT
     Dosage: 500 MG;TID;PO
     Route: 048
  3. ASPIRIN [Concomitant]
  4. FUROSEMIDE [Concomitant]
  5. INSULIN ASPART [Concomitant]
  6. SPIRONOLACTONE [Concomitant]
  7. CYANOCOBALAMIN [Concomitant]
  8. ACETAMINOPHEN W/ CODEINE [Concomitant]

REACTIONS (6)
  - BLOOD POTASSIUM INCREASED [None]
  - DYSPNOEA [None]
  - FALL [None]
  - GASTRIC ULCER [None]
  - HAEMOGLOBIN DECREASED [None]
  - LETHARGY [None]
